FAERS Safety Report 6112318-5 (Version None)
Quarter: 2009Q1

REPORT INFORMATION
  Report Type: 
  Country: None (occurrence: None)
  Receive Date: 20090311
  Receipt Date: 20090311
  Transmission Date: 20090719
  Serious: Yes (Other)
  Sender: FDA-Public Use
  Company Number: None

PATIENT
  Age: 73 Year
  Sex: Female
  Weight: 69.4003 kg

DRUGS (1)
  1. DETROL LA [Suspect]
     Indication: HYPERTONIC BLADDER
     Dosage: 2-5-09 ONE DAILY TOOK ONLY ONE  30 TABS
     Dates: start: 20090205

REACTIONS (5)
  - ABDOMINAL DISTENSION [None]
  - CYSTITIS [None]
  - DYSURIA [None]
  - PAIN [None]
  - SENSATION OF PRESSURE [None]
